FAERS Safety Report 8512414 (Version 2)
Quarter: 2014Q2

REPORT INFORMATION
  Report Type: Spontaneous
  Country: US (occurrence: US)
  Receive Date: 20120413
  Receipt Date: 20140623
  Transmission Date: 20141212
  Serious: No
  Sender: FDA-Public Use
  Company Number: US-ASTRAZENECA-2011SE58567

PATIENT
  Age: 57 Year
  Sex: Male
  Weight: 99.8 kg

DRUGS (9)
  1. NEXIUM [Suspect]
     Route: 048
     Dates: start: 2009
  2. LISINOPRIL [Suspect]
     Indication: BLOOD PRESSURE ABNORMAL
     Route: 048
     Dates: start: 2006
  3. HYDROCODONE [Concomitant]
     Indication: RHEUMATOID ARTHRITIS
     Dosage: 10 MG/5DAY PRN
     Route: 048
     Dates: start: 2004
  4. PREDNISONE [Concomitant]
     Indication: CROHN^S DISEASE
     Route: 048
     Dates: start: 1979
  5. CELEBREX [Concomitant]
     Indication: RHEUMATOID ARTHRITIS
     Route: 048
  6. PENTUSA [Concomitant]
     Indication: CROHN^S DISEASE
     Route: 048
     Dates: start: 2013
  7. BENLAFAXINE [Concomitant]
     Indication: DEPRESSION
     Route: 048
     Dates: start: 2006
  8. ONDANSETRON [Concomitant]
     Indication: NAUSEA
     Dosage: 8MG X 2 DAYS PRN
     Dates: start: 1976
  9. XANAX [Concomitant]
     Indication: CRYING
     Route: 048

REACTIONS (11)
  - Barrett^s oesophagus [Unknown]
  - Throat tightness [Recovered/Resolved]
  - Oesophageal spasm [Unknown]
  - Choking [Unknown]
  - Malaise [Unknown]
  - Nausea [Not Recovered/Not Resolved]
  - Vomiting [Unknown]
  - Regurgitation [None]
  - Gastrooesophageal reflux disease [None]
  - Intentional product misuse [Unknown]
  - Drug dose omission [Unknown]
